FAERS Safety Report 12544551 (Version 3)
Quarter: 2016Q3

REPORT INFORMATION
  Report Type: Spontaneous
  Country: GB (occurrence: GB)
  Receive Date: 20160711
  Receipt Date: 20160804
  Transmission Date: 20161109
  Serious: Yes (Hospitalization, Other)
  Sender: FDA-Public Use
  Company Number: GB-TEVA-670180ACC

PATIENT
  Age: 53 Year
  Sex: Male
  Weight: 83 kg

DRUGS (12)
  1. ONDANSETRON [Concomitant]
     Active Substance: ONDANSETRON
     Indication: VOMITING
     Dosage: 16 MILLIGRAM DAILY;
     Route: 048
     Dates: start: 20160509, end: 20160623
  2. SODIUM CHLORIDE. [Concomitant]
     Active Substance: SODIUM CHLORIDE
     Indication: DEHYDRATION
     Dosage: 1000ML WITH CISPLATIN, 1000ML POST CISPLATIN
     Dates: start: 20160509, end: 20160623
  3. MAGNESIUM SULFATE. [Concomitant]
     Active Substance: MAGNESIUM SULFATE
     Indication: DEHYDRATION
     Dosage: 8MMOL MAGNESIUM SULPHATE, 1000ML WITH CISPLATIN, 1000ML POST CISPLATIN, FOR HYDRATION FLUID
     Route: 042
     Dates: start: 20160509, end: 20160623
  4. SODIUM CHLORIDE 0.9% [Concomitant]
     Active Substance: SODIUM CHLORIDE
     Indication: DEHYDRATION
     Route: 042
     Dates: start: 20160509, end: 20160623
  5. CISPLATIN. [Suspect]
     Active Substance: CISPLATIN
     Indication: TONGUE NEOPLASM MALIGNANT STAGE UNSPECIFIED
     Dosage: COMPLETED SEVERAL WEEKS AGO
     Route: 042
     Dates: start: 20160509
  6. CISPLATIN. [Suspect]
     Active Substance: CISPLATIN
     Dosage: 14.2857 MILLIGRAM DAILY; COMPLETED SEVERAL WEEKS AGO?
     Route: 042
     Dates: end: 20160523
  7. DEXAMETHASONE. [Concomitant]
     Active Substance: DEXAMETHASONE
     Indication: VOMITING
     Dosage: 8 MILLIGRAM DAILY;
     Route: 048
     Dates: start: 20160509, end: 20160623
  8. DEXAMETHASONE. [Concomitant]
     Active Substance: DEXAMETHASONE
     Route: 042
     Dates: start: 20160509, end: 20160623
  9. FUROSEMIDE. [Concomitant]
     Active Substance: FUROSEMIDE
     Indication: CHEMOTHERAPY
     Route: 048
     Dates: start: 20160509, end: 20160623
  10. ONDANSETRON [Concomitant]
     Active Substance: ONDANSETRON
     Dosage: 2 DAYS POST CHEMO?
     Route: 042
     Dates: start: 20160509, end: 20160623
  11. POTASSIUM [Concomitant]
     Active Substance: POTASSIUM
     Indication: DEHYDRATION
     Dosage: 20MML POTASSIUM, 1000ML WITH CISPLATIN, 1000ML POST CISPLATIN?
     Route: 042
     Dates: start: 20160509, end: 20160623
  12. CISPLATIN. [Suspect]
     Active Substance: CISPLATIN
     Dosage: 14.2857 MILLIGRAM DAILY; COMPLETED SEVERAL WEEKS AGO
     Route: 042

REACTIONS (7)
  - Infection [Unknown]
  - Hypophagia [Unknown]
  - Body temperature increased [Unknown]
  - Pneumonia aspiration [Unknown]
  - Vomiting [Unknown]
  - Neutropenic sepsis [Recovered/Resolved]
  - Malaise [Unknown]

NARRATIVE: CASE EVENT DATE: 201606
